FAERS Safety Report 21224596 (Version 1)
Quarter: 2022Q3

REPORT INFORMATION
  Report Type: Spontaneous
  Country: US (occurrence: US)
  Receive Date: 20220817
  Receipt Date: 20220817
  Transmission Date: 20221027
  Serious: No
  Sender: FDA-Public Use
  Company Number: US-OTSUKA-2021_040026

PATIENT

DRUGS (1)
  1. ABILIFY MAINTENA [Suspect]
     Active Substance: ARIPIPRAZOLE
     Indication: Product used for unknown indication
     Dosage: 400 MG, QM (INJECT 1 VIAL INTRAMUSCULAR EVERY 4 WEEKS)
     Route: 030

REACTIONS (2)
  - Product dose omission issue [Unknown]
  - Product availability issue [Unknown]
